FAERS Safety Report 6307742-1 (Version None)
Quarter: 2009Q3

REPORT INFORMATION
  Report Type: 
  Country: None (occurrence: None)
  Receive Date: 20090812
  Receipt Date: 20090812
  Transmission Date: 20100115
  Serious: Yes (Other)
  Sender: FDA-Public Use
  Company Number: None

PATIENT
  Sex: Female
  Weight: 106.5953 kg

DRUGS (1)
  1. ZICAM COLD REMEDY GEL SWABS ZINCUM GLUCONICUM 2X MATRIXX INITIATIVES, [Suspect]
     Indication: NASOPHARYNGITIS
     Dosage: ONE -1- SWAB 2-3 TIMES DAILY NASAL
     Route: 045
     Dates: start: 20090314, end: 20090322

REACTIONS (2)
  - ANOSMIA [None]
  - HYPOGEUSIA [None]
